FAERS Safety Report 4488579-5 (Version None)
Quarter: 2004Q4

REPORT INFORMATION
  Report Type: 
  Country: None (occurrence: None)
  Receive Date: 20041028
  Receipt Date: 20041028
  Transmission Date: 20050328
  Serious: Yes (Other)
  Sender: FDA-Public Use
  Company Number: None

PATIENT
  Age: 46 Year
  Sex: Female
  Weight: 71.2147 kg

DRUGS (1)
  1. ULTRAM [Suspect]

REACTIONS (2)
  - HYPOAESTHESIA [None]
  - PARAESTHESIA [None]
